FAERS Safety Report 8108047-9 (Version None)
Quarter: 2012Q1

REPORT INFORMATION
  Report Type: 
  Country: None (occurrence: None)
  Receive Date: 20120202
  Receipt Date: 20120127
  Transmission Date: 20120608
  Serious: Yes (Other)
  Sender: FDA-Public Use
  Company Number: FR-PFIZER INC-2012022827

PATIENT
  Age: 66 Year
  Sex: Female

DRUGS (5)
  1. LYRICA [Suspect]
     Indication: HEADACHE
     Dosage: 25 MG, 2X/DAY
     Dates: start: 20111001, end: 20120101
  2. PRAZEPAM [Concomitant]
     Dosage: AT BEDTIME
  3. AMITRIPTYLINE HCL [Concomitant]
     Dosage: UNK
  4. SOTALOL [Concomitant]
     Dosage: TWICE DAILY
  5. STABLON [Concomitant]
     Dosage: UNK
     Dates: start: 20111201

REACTIONS (2)
  - HOT FLUSH [None]
  - PHLEBITIS [None]
